FAERS Safety Report 7830859-7 (Version None)
Quarter: 2011Q4

REPORT INFORMATION
  Report Type: 
  Country: None (occurrence: None)
  Receive Date: 20111021
  Receipt Date: 20111014
  Transmission Date: 20120403
  Serious: Yes (Other)
  Sender: FDA-Public Use
  Company Number: DK-PFIZER INC-2011247472

PATIENT
  Age: 59 Year
  Sex: Male

DRUGS (2)
  1. IMADRAX [Interacting]
     Indication: PNEUMONIA
     Dosage: 1000 MG, 2X/DAY
     Route: 048
     Dates: start: 20110708, end: 20110715
  2. VARENICLINE TARTRATE [Suspect]
     Indication: TOBACCO USER
     Dosage: UNK
     Route: 048
     Dates: start: 20110701, end: 20110816

REACTIONS (2)
  - DRUG INTERACTION [None]
  - HEPATITIS [None]
